FAERS Safety Report 19395118 (Version 8)
Quarter: 2022Q1

REPORT INFORMATION
  Report Type: Report from Study
  Country: US (occurrence: US)
  Receive Date: 20210609
  Receipt Date: 20220218
  Transmission Date: 20220423
  Serious: Yes (Life-Threatening)
  Sender: FDA-Public Use
  Company Number: NVSC2021US130340

PATIENT
  Age: 64 Year
  Sex: Male

DRUGS (3)
  1. ENTRESTO [Suspect]
     Active Substance: SACUBITRIL\VALSARTAN
     Indication: Cardiac failure
     Dosage: 1 DOSAGE FORM, BID (49/51 MG)
     Route: 048
     Dates: start: 20210529
  2. ENTRESTO [Suspect]
     Active Substance: SACUBITRIL\VALSARTAN
     Dosage: 1 DOSAGE FORM, BID (24/26 MG)
     Route: 048
  3. LASIX [Suspect]
     Active Substance: FUROSEMIDE
     Indication: Product used for unknown indication
     Dosage: UNK, QW
     Route: 065
     Dates: start: 2018

REACTIONS (8)
  - Near death experience [Unknown]
  - Abdominal pain upper [Recovering/Resolving]
  - Taste disorder [Unknown]
  - Fatigue [Unknown]
  - Blood pressure systolic decreased [Recovering/Resolving]
  - Dizziness [Unknown]
  - Productive cough [Unknown]
  - Hypotension [Unknown]

NARRATIVE: CASE EVENT DATE: 20210607
